FAERS Safety Report 8906217 (Version 2)
Quarter: 2012Q4

REPORT INFORMATION
  Report Type: 
  Country: US (occurrence: None)
  Receive Date: 20121114
  Receipt Date: 20121128
  Transmission Date: 20130627
  Serious: Yes (Hospitalization)
  Sender: FDA-Public Use
  Company Number: None

PATIENT
  Sex: Male
  Weight: 79.38 kg

DRUGS (1)
  1. PROCHLORPERAZINE [Suspect]
     Route: 042

REACTIONS (6)
  - Pyrexia [None]
  - Arthralgia [None]
  - Nausea [None]
  - Dizziness [None]
  - Oedema peripheral [None]
  - Infusion site swelling [None]
